FAERS Safety Report 5224940-9 (Version None)
Quarter: 2007Q1

REPORT INFORMATION
  Report Type: 
  Country: None (occurrence: None)
  Receive Date: 20070126
  Receipt Date: 20070111
  Transmission Date: 20070707
  Serious: Yes (Hospitalization)
  Sender: FDA-Public Use
  Company Number: GXKR2007NO00705

PATIENT
  Age: 49 Year
  Sex: Female

DRUGS (4)
  1. METFORMIN HCL [Suspect]
     Indication: DIABETES MELLITUS NON-INSULIN-DEPENDENT
     Dosage: 6 G,
  2. LOSARTAN POTASSIUM [Suspect]
     Indication: HYPERTENSION
     Dosage: 50 MG,
  3. GLYBURIDE [Concomitant]
  4. HYDROCHLOROTHIAZIDE [Concomitant]

REACTIONS (9)
  - ACCIDENTAL OVERDOSE [None]
  - CIRCULATORY COLLAPSE [None]
  - GASTROENTERITIS [None]
  - HYPERVENTILATION [None]
  - HYPOGLYCAEMIA [None]
  - HYPOTHERMIA [None]
  - LACTIC ACIDOSIS [None]
  - LOSS OF CONSCIOUSNESS [None]
  - RENAL FAILURE [None]
